FAERS Safety Report 11107702 (Version 2)
Quarter: 2015Q2

REPORT INFORMATION
  Report Type: Spontaneous
  Country: US (occurrence: US)
  Receive Date: 20150512
  Receipt Date: 20150522
  Transmission Date: 20150821
  Serious: Yes (Other)
  Sender: FDA-Public Use
  Company Number: US-BAYER-2015-199172

PATIENT
  Age: 80 Year
  Sex: Female
  Weight: 75 kg

DRUGS (4)
  1. DARVON COMPOUND [Suspect]
     Active Substance: ASPIRIN\CAFFEINE\PROPOXYPHENE HYDROCHLORIDE
  2. BAYER GENUINE ASPIRIN [Suspect]
     Active Substance: ASPIRIN
     Indication: ARTHRALGIA
  3. BAYER GENUINE ASPIRIN [Suspect]
     Active Substance: ASPIRIN
     Indication: ARTHRITIS
     Dosage: 2 UNK, UNK
     Route: 048
  4. PHILLIPS^ COLON HEALTH [Suspect]
     Active Substance: PROBIOTICS NOS
     Dosage: UNK
     Route: 048
     Dates: start: 20150401, end: 20150415

REACTIONS (5)
  - Presyncope [Recovered/Resolved]
  - Nausea [Recovered/Resolved]
  - Gastric ulcer haemorrhage [Recovered/Resolved]
  - Headache [Recovered/Resolved]
  - Rectal haemorrhage [Recovered/Resolved]

NARRATIVE: CASE EVENT DATE: 1990
